FAERS Safety Report 8473643-6 (Version None)
Quarter: 2012Q2

REPORT INFORMATION
  Report Type: 
  Country: None (occurrence: None)
  Receive Date: 20120628
  Receipt Date: 20110812
  Transmission Date: 20120825
  Serious: Yes (Death)
  Sender: FDA-Public Use
  Company Number: US-MYLANLABS-2011S1015730

PATIENT
  Age: 81 Year
  Sex: Female
  Weight: 52.62 kg

DRUGS (4)
  1. CLOZAPINE [Suspect]
     Indication: HALLUCINATION
     Route: 048
     Dates: start: 20100205
  2. ARICEPT [Concomitant]
  3. COMTAN [Concomitant]
  4. SINEMET [Concomitant]

REACTIONS (1)
  - SEPSIS [None]
